FAERS Safety Report 8983977 (Version 1)
Quarter: 2012Q4

REPORT INFORMATION
  Report Type: Spontaneous
  Country: US (occurrence: None)
  Receive Date: 20121214
  Receipt Date: 20121214
  Transmission Date: 20130627
  Serious: Yes (Death)
  Sender: FDA-Public Use
  Company Number: 2012AP004283

PATIENT
  Age: 34 Year
  Sex: Male

DRUGS (8)
  1. LEVETIRACETAM TABLETS 1000MG (LEVETIRACETAM) [Suspect]
     Indication: DRUG USE FOR UNKNOWN INDICATION
  2. AMITRIPTYLINE [Suspect]
  3. DIPHENHYDRAMINE [Suspect]
  4. LAMOTRIGINE [Suspect]
  5. MORPHINE [Suspect]
  6. NORTRIPTYLINE [Suspect]
  7. PREGABALIN [Suspect]
  8. TRAZODONE [Suspect]

REACTIONS (2)
  - Accidental poisoning [None]
  - Toxicity to various agents [None]
